FAERS Safety Report 13204488 (Version 1)
Quarter: 2017Q1

REPORT INFORMATION
  Report Type: Spontaneous
  Country: US (occurrence: US)
  Receive Date: 20170209
  Receipt Date: 20170209
  Transmission Date: 20170428
  Serious: Yes (Death, Other)
  Sender: FDA-Public Use
  Company Number: US-WEST-WARD PHARMACEUTICALS CORP.-US-H14001-17-00334

PATIENT
  Age: 49 Year
  Sex: Female

DRUGS (8)
  1. DIAZEPAM. [Suspect]
     Active Substance: DIAZEPAM
     Indication: BACK PAIN
     Route: 065
  2. OXYCODONE [Suspect]
     Active Substance: OXYCODONE
     Indication: BACK PAIN
     Route: 065
  3. ATIVAN [Suspect]
     Active Substance: LORAZEPAM
     Indication: BACK PAIN
     Dosage: UP TO 6 MG
     Route: 065
  4. TRIIODOTHYRONINE [Concomitant]
     Active Substance: LIOTHYRONINE SODIUM
     Indication: ADJUVANT THERAPY
     Route: 065
  5. FLUOXETINE [Concomitant]
     Active Substance: FLUOXETINE HYDROCHLORIDE
     Indication: DEPRESSION
     Route: 065
  6. ATIVAN [Suspect]
     Active Substance: LORAZEPAM
     Route: 030
  7. METHADONE [Suspect]
     Active Substance: METHADONE HYDROCHLORIDE
     Indication: BACK PAIN
     Route: 065
  8. BUPROPION. [Concomitant]
     Active Substance: BUPROPION
     Indication: DEPRESSION
     Route: 065

REACTIONS (8)
  - Drug withdrawal syndrome [Fatal]
  - Drug dependence [None]
  - Alcohol use [None]
  - Suicidal ideation [None]
  - Physical assault [None]
  - Belligerence [None]
  - Condition aggravated [None]
  - Drug dependence [Not Recovered/Not Resolved]
